FAERS Safety Report 5961309-3 (Version None)
Quarter: 2008Q4

REPORT INFORMATION
  Report Type: 
  Country: None (occurrence: None)
  Receive Date: 20081114
  Receipt Date: 20080409
  Transmission Date: 20090506
  Serious: Yes (Other)
  Sender: FDA-Public Use
  Company Number: US-WYE-H03558708

PATIENT
  Age: 44 Year
  Sex: Female
  Weight: 63.56 kg

DRUGS (1)
  1. ADVIL COLD AND SINUS [Suspect]
     Indication: SINUS HEADACHE
     Dosage: 2 CAPLETS AS NEEDED, ORAL
     Route: 048
     Dates: end: 20080408

REACTIONS (5)
  - DRY MOUTH [None]
  - FORMICATION [None]
  - HEART RATE INCREASED [None]
  - PALPITATIONS [None]
  - PSYCHOMOTOR HYPERACTIVITY [None]
